FAERS Safety Report 18311436 (Version 1)
Quarter: 2020Q3

REPORT INFORMATION
  Report Type: Spontaneous
  Country: US (occurrence: US)
  Receive Date: 20200923
  Receipt Date: 20200923
  Transmission Date: 20201103
  Serious: No
  Sender: FDA-Public Use
  Company Number: None

PATIENT
  Age: 21 Year
  Sex: Male
  Weight: 63.9 kg

DRUGS (3)
  1. EQUATE COOL AND HEAT PAIN RELIEVING LIQUID [Suspect]
     Active Substance: MENTHOL
     Indication: ARTHRALGIA
     Dosage: ?          QUANTITY:1 AFFECTED AREA;?
     Route: 061
     Dates: start: 20200923, end: 20200923
  2. EQUATE COOL AND HEAT PAIN RELIEVING LIQUID [Suspect]
     Active Substance: MENTHOL
     Indication: MYALGIA
     Dosage: ?          QUANTITY:1 AFFECTED AREA;?
     Route: 061
     Dates: start: 20200923, end: 20200923
  3. ATOMOXETINE. [Concomitant]
     Active Substance: ATOMOXETINE HYDROCHLORIDE

REACTIONS (3)
  - Application site swelling [None]
  - Application site pain [None]
  - Application site erythema [None]
